FAERS Safety Report 5089757-7 (Version None)
Quarter: 2006Q3

REPORT INFORMATION
  Report Type: 
  Country: None (occurrence: None)
  Receive Date: 20060828
  Receipt Date: 20060821
  Transmission Date: 20061208
  Serious: Yes (Death)
  Sender: FDA-Public Use
  Company Number: PHHO2006RO13757

PATIENT
  Age: 73 Year
  Sex: Male
  Weight: 78 kg

DRUGS (5)
  1. CARBIDOPA,ENTACAPONE,LEVODOPA [Suspect]
     Indication: PARKINSON'S DISEASE
     Dosage: 4 X 100/25/200 MG/DAY
     Route: 048
     Dates: start: 20060321
  2. METOPROLOL TARTRATE [Concomitant]
     Indication: HYPERTENSION
  3. TRIMETAZIDINE [Concomitant]
     Indication: ISCHAEMIC CARDIOMYOPATHY
  4. DIGOXIN [Concomitant]
     Indication: ATRIAL FIBRILLATION
  5. PENTOXIFYLLINE [Concomitant]
     Indication: CEREBRAL ISCHAEMIA

REACTIONS (3)
  - CARDIO-RESPIRATORY ARREST [None]
  - CHEST PAIN [None]
  - DYSPNOEA [None]
